FAERS Safety Report 14921132 (Version 2)
Quarter: 2018Q2

REPORT INFORMATION
  Report Type: Spontaneous
  Country: DE (occurrence: DE)
  Receive Date: 20180521
  Receipt Date: 20180523
  Transmission Date: 20180711
  Serious: Yes (Hospitalization, Disabling)
  Sender: FDA-Public Use
  Company Number: DE-ASTRAZENECA-2018SE63935

PATIENT
  Sex: Male
  Weight: 75 kg

DRUGS (3)
  1. CETIRIZINE [Concomitant]
     Active Substance: CETIRIZINE HYDROCHLORIDE
     Indication: RHINITIS ALLERGIC
     Dosage: 5.0MG UNKNOWN
     Route: 048
  2. BUDESONIDE. [Suspect]
     Active Substance: BUDESONIDE
     Indication: RHINITIS ALLERGIC
     Dosage: 64.0UG/INHAL UNKNOWN
     Route: 045
  3. BUDESONIDE. [Suspect]
     Active Substance: BUDESONIDE
     Indication: RHINITIS ALLERGIC
     Dosage: 64.0UG/INHAL UNKNOWN
     Route: 045

REACTIONS (2)
  - Retinal degeneration [Unknown]
  - Retinal detachment [Unknown]

NARRATIVE: CASE EVENT DATE: 201711
